FAERS Safety Report 19815797 (Version 1)
Quarter: 2021Q3

REPORT INFORMATION
  Report Type: Spontaneous
  Country: FR (occurrence: FR)
  Receive Date: 20210909
  Receipt Date: 20210909
  Transmission Date: 20211014
  Serious: Yes (Other)
  Sender: FDA-Public Use
  Company Number: FR-PFIZER INC-202101141881

PATIENT
  Age: 70 Year
  Sex: Male

DRUGS (1)
  1. XELJANZ [Suspect]
     Active Substance: TOFACITINIB CITRATE
     Indication: RHEUMATOID ARTHRITIS
     Dosage: 5 MG, 2X/DAY IN THE MORNING AND IN THE EVENING
     Dates: start: 201904, end: 202108

REACTIONS (2)
  - Hypertensive crisis [Unknown]
  - Chest discomfort [Unknown]

NARRATIVE: CASE EVENT DATE: 202104
